FAERS Safety Report 17400509 (Version 1)
Quarter: 2020Q1

REPORT INFORMATION
  Report Type: Spontaneous
  Country: US (occurrence: US)
  Receive Date: 20200208
  Receipt Date: 20200208
  Transmission Date: 20200409
  Serious: No
  Sender: FDA-Public Use
  Company Number: None

PATIENT
  Age: 43 Year
  Sex: Female
  Weight: 49.05 kg

DRUGS (2)
  1. APRI [Concomitant]
     Active Substance: DESOGESTREL\ETHINYL ESTRADIOL
  2. K-DUR 20 MEQ, POTASSIUM CHLORIDE [Suspect]
     Active Substance: POTASSIUM CHLORIDE
     Indication: HYPOKALAEMIA
     Dosage: ?          QUANTITY:2 CAPSULE(S);OTHER FREQUENCY:ONE TIME DOSE;?
     Route: 048
     Dates: start: 20200206, end: 20200206

REACTIONS (3)
  - Burning sensation [None]
  - Rash vesicular [None]
  - Rash [None]

NARRATIVE: CASE EVENT DATE: 20200207
